FAERS Safety Report 7151823-X (Version None)
Quarter: 2010Q4

REPORT INFORMATION
  Report Type: 
  Country: None (occurrence: None)
  Receive Date: 20101210
  Receipt Date: 20101101
  Transmission Date: 20110411
  Serious: Yes (Death, Hospitalization, Other)
  Sender: FDA-Public Use
  Company Number: US-BAXTER-2009BH017348

PATIENT
  Sex: Female

DRUGS (25)
  1. HEPARIN SODIUM INJECTION [Suspect]
     Indication: HAEMODIALYSIS
     Route: 042
     Dates: start: 20071102, end: 20071102
  2. HEPARIN SODIUM INJECTION [Suspect]
     Indication: AORTIC VALVE REPLACEMENT
     Route: 042
     Dates: start: 20071102, end: 20071102
  3. HEPARIN SODIUM INJECTION [Suspect]
     Indication: MITRAL VALVE REPLACEMENT
     Route: 042
     Dates: start: 20071102, end: 20071102
  4. HEPARIN SODIUM INJECTION [Suspect]
     Route: 065
     Dates: start: 20071031
  5. HEPARIN SODIUM INJECTION [Suspect]
     Route: 065
     Dates: start: 20071031
  6. HEPARIN SODIUM INJECTION [Suspect]
     Route: 065
     Dates: start: 20071031
  7. HEPARIN SODIUM INJECTION [Suspect]
     Route: 058
     Dates: start: 20071108, end: 20071108
  8. HEPARIN SODIUM INJECTION [Suspect]
     Route: 058
     Dates: start: 20071108, end: 20071108
  9. HEPARIN SODIUM INJECTION [Suspect]
     Route: 058
     Dates: start: 20071108, end: 20071108
  10. HEPARIN SODIUM INJECTION [Suspect]
     Route: 058
     Dates: start: 20071115, end: 20071116
  11. HEPARIN SODIUM INJECTION [Suspect]
     Route: 058
     Dates: start: 20071115, end: 20071116
  12. HEPARIN SODIUM INJECTION [Suspect]
     Route: 058
     Dates: start: 20071115, end: 20071116
  13. HEPARIN SODIUM INJECTION [Suspect]
     Route: 058
     Dates: start: 20071107, end: 20071107
  14. HEPARIN SODIUM INJECTION [Suspect]
     Route: 058
     Dates: start: 20071107, end: 20071107
  15. HEPARIN SODIUM INJECTION [Suspect]
     Route: 058
     Dates: start: 20071107, end: 20071107
  16. HEPARIN SODIUM INJECTION [Suspect]
     Dates: start: 20090101, end: 20090101
  17. HEPARIN SODIUM INJECTION [Suspect]
     Dates: start: 20090101, end: 20090101
  18. HEPARIN SODIUM INJECTION [Suspect]
     Dates: start: 20090101, end: 20090101
  19. HEPARIN SODIUM 5,000 UNITS IN DEXTROSE 5% [Suspect]
     Indication: HEART VALVE REPLACEMENT
     Route: 041
     Dates: start: 20071102, end: 20071106
  20. HEPARIN SODIUM INJECTION [Suspect]
     Route: 042
     Dates: start: 20071104, end: 20071118
  21. AMLODIPINE BESYLATE [Concomitant]
     Indication: PRODUCT USED FOR UNKNOWN INDICATION
     Route: 048
  22. CALCIUM WITH VITAMIN D [Concomitant]
     Indication: PRODUCT USED FOR UNKNOWN INDICATION
     Route: 048
  23. COREG [Concomitant]
     Indication: PRODUCT USED FOR UNKNOWN INDICATION
     Route: 048
  24. SYNTHROID [Concomitant]
     Indication: PRODUCT USED FOR UNKNOWN INDICATION
     Route: 048
  25. NAMENDA [Concomitant]
     Indication: PRODUCT USED FOR UNKNOWN INDICATION
     Route: 048

REACTIONS (25)
  - ABDOMINAL PAIN [None]
  - ARTHRALGIA [None]
  - ATELECTASIS [None]
  - BILE DUCT STONE [None]
  - BLOOD PRESSURE INCREASED [None]
  - BRONCHITIS [None]
  - CARDIAC FAILURE CONGESTIVE [None]
  - CHEST DISCOMFORT [None]
  - CHEST PAIN [None]
  - COUGH [None]
  - DECREASED APPETITE [None]
  - DEPRESSION [None]
  - DYSPNOEA [None]
  - EMOTIONAL DISTRESS [None]
  - GENERAL PHYSICAL HEALTH DETERIORATION [None]
  - HYPERLIPIDAEMIA [None]
  - HYPOTHYROIDISM [None]
  - INSOMNIA [None]
  - LIVER FUNCTION TEST ABNORMAL [None]
  - MALAISE [None]
  - MENTAL IMPAIRMENT [None]
  - PLATELET COUNT DECREASED [None]
  - PLEURAL EFFUSION [None]
  - PYREXIA [None]
  - RENAL FAILURE [None]
